FAERS Safety Report 8512634-3 (Version None)
Quarter: 2012Q3

REPORT INFORMATION
  Report Type: 
  Country: None (occurrence: None)
  Receive Date: 20120716
  Receipt Date: 20120706
  Transmission Date: 20120928
  Serious: Yes (Other)
  Sender: FDA-Public Use
  Company Number: US-SAVIENT-2012S1000068

PATIENT
  Age: 67 Year
  Sex: Male

DRUGS (3)
  1. KRYSTEXXA [Suspect]
     Route: 042
     Dates: start: 20120220, end: 20120220
  2. KRYSTEXXA [Suspect]
     Route: 042
     Dates: start: 20120305, end: 20120305
  3. KRYSTEXXA [Suspect]
     Indication: GOUT
     Route: 042
     Dates: start: 20120202, end: 20120202

REACTIONS (1)
  - HAEMOLYSIS [None]
